FAERS Safety Report 7239345-9 (Version None)
Quarter: 2011Q1

REPORT INFORMATION
  Report Type: 
  Country: None (occurrence: None)
  Receive Date: 20110121
  Receipt Date: 20110118
  Transmission Date: 20110831
  Serious: Yes (Death, Hospitalization)
  Sender: FDA-Public Use
  Company Number: JP-PFIZER INC-2010130150

PATIENT
  Age: 73 Year
  Sex: Female
  Weight: 42.6 kg

DRUGS (22)
  1. LOXONIN [Concomitant]
     Indication: HEADACHE
     Dosage: 60 MG, AS NEEDED
     Route: 048
     Dates: start: 20100915
  2. PYRINAZIN [Concomitant]
     Indication: STOMATITIS
     Dosage: UNK
     Route: 048
     Dates: start: 20100623
  3. SUNITINIB MALATE [Suspect]
     Indication: COLORECTAL CANCER
     Dosage: 12.5 MG, 1X/DAY
     Route: 048
     Dates: start: 20090723, end: 20100929
  4. OXYCODONE HCL [Concomitant]
     Indication: STOMATITIS
     Dosage: 2.5 MG, AS NEEDED
     Route: 048
     Dates: start: 20101007
  5. PARIET [Concomitant]
     Indication: GASTRIC ULCER
     Dosage: 10 MG, 1X/DAY
     Route: 048
     Dates: start: 20090301
  6. CEPHADOL [Concomitant]
     Indication: DIZZINESS
     Dosage: 25 MG, 3X/DAY
     Route: 048
     Dates: start: 20100325
  7. MYSLEE [Concomitant]
     Indication: INSOMNIA
     Dosage: 10 MG, AS NEEDED
     Route: 048
     Dates: start: 20091009
  8. HERBAL PREPARATION [Concomitant]
     Indication: CONSTIPATION
     Dosage: 2.5 G, 3X/DAY
     Route: 048
     Dates: start: 20090301
  9. KENALOG [Concomitant]
     Indication: STOMATITIS
     Dosage: UNK
     Route: 061
     Dates: start: 20090804
  10. LIDOCAINE HYDROCHLORIDE [Concomitant]
     Dosage: UNK
     Route: 049
     Dates: start: 20100623
  11. FLUOROURACIL [Suspect]
     Dosage: 2750 MG, 46 HR CONTINUOUS INFUSION, EVERY 2 WEEKS
     Route: 042
     Dates: start: 20090723, end: 20101002
  12. METHYCOBAL [Concomitant]
     Indication: DIZZINESS
     Dosage: 500 UG, 3X/DAY
     Route: 048
     Dates: start: 20100325
  13. MAGNESIUM OXIDE [Concomitant]
     Indication: CONSTIPATION
     Dosage: 500 MG, 3X/DAY
     Route: 048
     Dates: start: 20090806
  14. HIRUDOID [Concomitant]
     Dosage: UNK
     Dates: start: 20090817
  15. BENZETHONIUM CHLORIDE [Concomitant]
     Dosage: UNK
     Route: 049
     Dates: start: 20100623
  16. NOVAMIN [Concomitant]
     Dosage: UNK
     Dates: start: 20101007, end: 20101009
  17. HACHIAZULE [Concomitant]
     Dosage: UNK
     Route: 049
     Dates: start: 20100623
  18. FLUOROURACIL [Suspect]
     Indication: COLORECTAL CANCER
     Dosage: EVERY 2 WEEKS
     Route: 040
     Dates: start: 20090723, end: 20090825
  19. *FOLINIC ACID [Suspect]
     Indication: COLORECTAL CANCER
     Dosage: 279 MG, EVERY 2 WEEKS
     Route: 042
     Dates: start: 20090723, end: 20100930
  20. RIZE [Concomitant]
     Indication: INSOMNIA
     Dosage: 5 MG, 3X/DAY
     Route: 048
     Dates: start: 20100916
  21. OXALIPLATIN [Suspect]
     Indication: COLORECTAL CANCER
     Dosage: UNK
     Route: 042
     Dates: start: 20090723, end: 20100107
  22. PURSENNID [Concomitant]
     Indication: CONSTIPATION
     Dosage: 24 MG, 1X/DAY
     Route: 048
     Dates: start: 20090301

REACTIONS (1)
  - PULMONARY HYPERTENSION [None]
